FAERS Safety Report 7994327-4 (Version None)
Quarter: 2011Q4

REPORT INFORMATION
  Report Type: 
  Country: None (occurrence: None)
  Receive Date: 20111220
  Receipt Date: 20101117
  Transmission Date: 20120403
  Serious: No
  Sender: FDA-Public Use
  Company Number: US-GLAXOSMITHKLINE-A0893017A

PATIENT
  Age: 75 Year
  Sex: Male

DRUGS (2)
  1. SORIATANE [Suspect]
     Indication: PRODUCT USED FOR UNKNOWN INDICATION
     Dosage: 25MG THREE TIMES PER WEEK
     Route: 048
  2. NIACIN [Concomitant]

REACTIONS (2)
  - METABOLIC DISORDER [None]
  - HEPATIC FUNCTION ABNORMAL [None]
